FAERS Safety Report 25790299 (Version 1)
Quarter: 2025Q3

REPORT INFORMATION
  Report Type: Spontaneous
  Country: EU (occurrence: EU)
  Receive Date: 20250911
  Receipt Date: 20250911
  Transmission Date: 20251020
  Serious: Yes (Other)
  Sender: MELINTA THERAPEUTICS
  Company Number: EU-RECORDATI-2025006046

PATIENT

DRUGS (2)
  1. METOPROLOL SUCCINATE [Interacting]
     Active Substance: METOPROLOL SUCCINATE
     Indication: Product used for unknown indication
     Route: 065
  2. DIGOXIN [Interacting]
     Active Substance: DIGOXIN
     Indication: Product used for unknown indication
     Route: 065

REACTIONS (6)
  - Atrial fibrillation [Unknown]
  - Asthenia [Unknown]
  - Bundle branch block bilateral [Unknown]
  - Bradycardia [Unknown]
  - Dizziness [Unknown]
  - Drug interaction [Recovered/Resolved]
